FAERS Safety Report 5423104-3 (Version None)
Quarter: 2007Q3

REPORT INFORMATION
  Report Type: 
  Country: None (occurrence: None)
  Receive Date: 20070821
  Receipt Date: 20070806
  Transmission Date: 20080115
  Serious: Yes (Other)
  Sender: FDA-Public Use
  Company Number: 2007RR-09147

PATIENT
  Age: 35 Year
  Sex: Female

DRUGS (1)
  1. MINOCYCLINE RPG 100MG COMPRIME PELLICULE (MNOCYCLINE) UNKNOWN [Suspect]
     Indication: SARCOIDOSIS
     Dosage: 200 MG, QD

REACTIONS (5)
  - GRANULOMA [None]
  - PAPILLARY THYROID CANCER [None]
  - PIGMENTATION DISORDER [None]
  - THYROID DISORDER [None]
  - THYROID NEOPLASM [None]
